FAERS Safety Report 5664261-3 (Version None)
Quarter: 2008Q1

REPORT INFORMATION
  Report Type: 
  Country: None (occurrence: None)
  Receive Date: 20080314
  Receipt Date: 20080311
  Transmission Date: 20080703
  Serious: Yes (Death)
  Sender: FDA-Public Use
  Company Number: US-ASTRAZENECA-2008UW04548

PATIENT
  Age: 4 Year
  Sex: Male

DRUGS (3)
  1. ZD1839 [Suspect]
     Indication: NEUROBLASTOMA
     Route: 048
     Dates: start: 20061001, end: 20061101
  2. IRINOTECAN HCL [Suspect]
     Indication: NEUROBLASTOMA
     Route: 042
     Dates: start: 20061006, end: 20071026
  3. NEULASTA [Concomitant]
     Route: 058

REACTIONS (14)
  - BRADYCARDIA [None]
  - CARDIO-RESPIRATORY ARREST [None]
  - HYPERTENSION [None]
  - HYPOTENSION [None]
  - LOSS OF CONSCIOUSNESS [None]
  - NEUTROPENIC COLITIS [None]
  - PANCYTOPENIA [None]
  - PERICARDIAL EFFUSION [None]
  - POOR PERIPHERAL CIRCULATION [None]
  - RENAL FAILURE [None]
  - RESPIRATORY DISORDER [None]
  - SEPSIS [None]
  - TACHYPNOEA [None]
  - THROMBOCYTOPENIA [None]
